FAERS Safety Report 22386224 (Version 1)
Quarter: 2023Q2

REPORT INFORMATION
  Report Type: Spontaneous
  Country: US (occurrence: US)
  Receive Date: 20230530
  Receipt Date: 20230530
  Transmission Date: 20230722
  Serious: Yes (Death, Hospitalization, Other)
  Sender: FDA-Public Use
  Company Number: US-CARA THERAPEUTICS, INC.-2023-00165-US

PATIENT

DRUGS (2)
  1. KORSUVA [Suspect]
     Active Substance: DIFELIKEFALIN ACETATE
     Indication: Product used for unknown indication
     Route: 065
  2. TYLENOL [Suspect]
     Active Substance: ACETAMINOPHEN
     Route: 065

REACTIONS (5)
  - Myocardial infarction [Fatal]
  - Overdose [Fatal]
  - Hepatic failure [Fatal]
  - Localised infection [Unknown]
  - Sepsis [Unknown]

NARRATIVE: CASE EVENT DATE: 20230523
